FAERS Safety Report 5574319-5 (Version None)
Quarter: 2007Q4

REPORT INFORMATION
  Report Type: 
  Country: None (occurrence: None)
  Receive Date: 20071227
  Receipt Date: 20071221
  Transmission Date: 20080405
  Serious: Yes (Other)
  Sender: FDA-Public Use
  Company Number: US-AVENTIS-200718827US

PATIENT
  Age: 67 Year
  Sex: Female

DRUGS (2)
  1. LANTUS [Suspect]
     Route: 051
     Dates: start: 20060101
  2. ANTIHYPERTENSIVES [Concomitant]
     Dosage: DOSE: UNK

REACTIONS (2)
  - HYPERTENSION [None]
  - VISUAL DISTURBANCE [None]
